FAERS Safety Report 24526205 (Version 5)
Quarter: 2024Q4

REPORT INFORMATION
  Report Type: Report from Study
  Country: US (occurrence: US)
  Receive Date: 20241021
  Receipt Date: 20241209
  Transmission Date: 20250115
  Serious: Yes (Hospitalization, Other)
  Sender: ABBVIE
  Company Number: US-ABBVIE-5967714

PATIENT
  Age: 67 Year
  Sex: Male
  Weight: 76.203 kg

DRUGS (3)
  1. SKYRIZI [Suspect]
     Active Substance: RISANKIZUMAB-RZAA
     Indication: Crohn^s disease
     Dosage: UNKNOWN
     Route: 058
     Dates: start: 20230925
  2. IMODIUM [Concomitant]
     Active Substance: LOPERAMIDE HYDROCHLORIDE
     Indication: Diarrhoea
  3. METOPROLOL [Concomitant]
     Active Substance: METOPROLOL
     Indication: Atrial flutter

REACTIONS (7)
  - Intestinal obstruction [Recovering/Resolving]
  - Atrial flutter [Recovered/Resolved]
  - Vomiting [Recovered/Resolved]
  - Polyp [Recovered/Resolved]
  - Stress [Recovered/Resolved]
  - Dyschezia [Unknown]
  - Small intestinal obstruction [Recovered/Resolved]

NARRATIVE: CASE EVENT DATE: 20240829
